FAERS Safety Report 6343152-9 (Version None)
Quarter: 2009Q3

REPORT INFORMATION
  Report Type: 
  Country: None (occurrence: None)
  Receive Date: 20090908
  Receipt Date: 20090826
  Transmission Date: 20100115
  Serious: Yes (Hospitalization, Other)
  Sender: FDA-Public Use
  Company Number: JP-BAYER-200912544BYL

PATIENT
  Age: 68 Year
  Sex: Male
  Weight: 66 kg

DRUGS (9)
  1. NEXAVAR [Suspect]
     Indication: RENAL CELL CARCINOMA STAGE IV
     Dosage: UNIT DOSE: 200 MG
     Route: 048
     Dates: start: 20080623, end: 20080901
  2. NEXAVAR [Suspect]
     Dosage: UNIT DOSE: 200 MG
     Route: 048
     Dates: start: 20081002, end: 20090723
  3. NEXAVAR [Suspect]
     Dosage: UNIT DOSE: 200 MG
     Route: 048
     Dates: start: 20090819
  4. INTERFERON ALFA [Concomitant]
     Route: 065
  5. HOKUNALIN [Concomitant]
     Route: 062
     Dates: start: 20080918
  6. TAKEPRON [Concomitant]
     Route: 048
     Dates: start: 20080918
  7. LENDORMIN [Concomitant]
     Route: 048
     Dates: start: 20080918
  8. DUROTEP [Concomitant]
     Dosage: AS USED: 2.5 MG
     Route: 062
     Dates: start: 20080918
  9. URINORM [Concomitant]
     Route: 048
     Dates: start: 20080918

REACTIONS (8)
  - ALOPECIA [None]
  - DIARRHOEA [None]
  - DISORIENTATION [None]
  - DIZZINESS [None]
  - HYPERTENSION [None]
  - NORMAL PRESSURE HYDROCEPHALUS [None]
  - PALMAR-PLANTAR ERYTHRODYSAESTHESIA SYNDROME [None]
  - RASH [None]
